FAERS Safety Report 7718105-6 (Version None)
Quarter: 2011Q3

REPORT INFORMATION
  Report Type: 
  Country: None (occurrence: None)
  Receive Date: 20110830
  Receipt Date: 20110824
  Transmission Date: 20111222
  Serious: Yes (Other)
  Sender: FDA-Public Use
  Company Number: DE-B.I. PHARMACEUTICALS,INC./RIDGEFIELD-2011-DE-04754DE

PATIENT
  Sex: Male

DRUGS (3)
  1. BISOPROLOL FUMARATE [Suspect]
     Dosage: 50 MG
     Route: 048
  2. SPIRIVA [Suspect]
     Route: 048
  3. RAMIPRIL [Suspect]
     Route: 048

REACTIONS (1)
  - SUICIDE ATTEMPT [None]
